FAERS Safety Report 6322828-3 (Version None)
Quarter: 2009Q3

REPORT INFORMATION
  Report Type: 
  Country: None (occurrence: None)
  Receive Date: 20090824
  Receipt Date: 20090817
  Transmission Date: 20100115
  Serious: Yes (Hospitalization, Other)
  Sender: FDA-Public Use
  Company Number: PHHY2009US34519

PATIENT
  Age: 42 Year
  Sex: Female

DRUGS (12)
  1. LOPRESOR [Suspect]
     Dosage: UNK
  2. LOPRESOR [Suspect]
     Dosage: 25 MG, BID
  3. ASPIRIN [Suspect]
     Dosage: 81 MG, QD
  4. HEPARIN [Suspect]
     Route: 042
  5. HEPARIN [Suspect]
     Dosage: 5000 UNITS
  6. NITROGLYCERIN [Suspect]
     Route: 060
  7. NITROGLYCERIN [Suspect]
     Route: 042
  8. LABETALOL HCL [Suspect]
     Dosage: 50 MG, BID
  9. CLOPIDOGREL [Concomitant]
     Dosage: 600 MG, UNK
  10. CLOPIDOGREL [Concomitant]
     Dosage: 75 MG, UNK
  11. RAMIPRIL [Concomitant]
     Dosage: 2.5 MG, UNK
  12. ATORVASTATIN [Concomitant]
     Dosage: 80 MG, UNK

REACTIONS (21)
  - ACUTE MYOCARDIAL INFARCTION [None]
  - ANGINA UNSTABLE [None]
  - ARRHYTHMIA SUPRAVENTRICULAR [None]
  - ARTERIAL STENOSIS [None]
  - BLOOD CHOLESTEROL INCREASED [None]
  - BLOOD CREATINE PHOSPHOKINASE INCREASED [None]
  - BLOOD CREATINE PHOSPHOKINASE MB [None]
  - BLOOD TRIGLYCERIDES INCREASED [None]
  - CAESAREAN SECTION [None]
  - CHEST PAIN [None]
  - DRUG EXPOSURE DURING PREGNANCY [None]
  - EJECTION FRACTION DECREASED [None]
  - HYPERHIDROSIS [None]
  - HYPOTENSION [None]
  - NAUSEA [None]
  - PERCUTANEOUS CORONARY INTERVENTION [None]
  - PREMATURE LABOUR [None]
  - PULMONARY VALVE INCOMPETENCE [None]
  - SINUS BRADYCARDIA [None]
  - STENT PLACEMENT [None]
  - TROPONIN INCREASED [None]
